FAERS Safety Report 24726040 (Version 1)
Quarter: 2024Q4

REPORT INFORMATION
  Report Type: Spontaneous
  Country: FR (occurrence: FR)
  Receive Date: 20241212
  Receipt Date: 20241212
  Transmission Date: 20250115
  Serious: Yes (Death, Hospitalization, Other)
  Sender: DR REDDYS
  Company Number: None

PATIENT
  Age: 32 Year
  Sex: Male

DRUGS (5)
  1. AZACITIDINE [Suspect]
     Active Substance: AZACITIDINE
     Indication: Myelodysplastic syndrome
     Dosage: 3 COURSES
  2. AZACITIDINE [Suspect]
     Active Substance: AZACITIDINE
     Indication: Polyarteritis nodosa
  3. PREDNISONE [Suspect]
     Active Substance: PREDNISONE
     Indication: Myelodysplastic syndrome
     Dosage: GRADUAL REDUCTION
  4. PREDNISONE [Suspect]
     Active Substance: PREDNISONE
     Indication: Polyarteritis nodosa
  5. HYDROXYUREA [Suspect]
     Active Substance: HYDROXYUREA
     Indication: Sickle cell disease

REACTIONS (6)
  - Drug ineffective [Fatal]
  - Disease recurrence [Fatal]
  - Myelodysplastic syndrome [Fatal]
  - Graft versus host disease [Unknown]
  - Condition aggravated [Unknown]
  - Polyarteritis nodosa [Recovering/Resolving]
